FAERS Safety Report 24085357 (Version 1)
Quarter: 2024Q3

REPORT INFORMATION
  Report Type: Spontaneous
  Country: US (occurrence: US)
  Receive Date: 20240712
  Receipt Date: 20240712
  Transmission Date: 20241017
  Serious: No
  Sender: BAYER
  Company Number: US-BAYER-2024A099294

PATIENT
  Age: 66 Year
  Sex: Female

DRUGS (1)
  1. ALEVE [Suspect]
     Active Substance: NAPROXEN SODIUM
     Indication: Pain
     Dosage: 1 A DAY WITH GLASS OF JUICE BEFORE HAVING
     Route: 048
     Dates: start: 201711, end: 2024

REACTIONS (1)
  - Incorrect product administration duration [Recovered/Resolved with Sequelae]

NARRATIVE: CASE EVENT DATE: 20171101
